FAERS Safety Report 13547726 (Version 2)
Quarter: 2017Q2

REPORT INFORMATION
  Report Type: Spontaneous
  Country: JP (occurrence: JP)
  Receive Date: 20170516
  Receipt Date: 20170605
  Transmission Date: 20170830
  Serious: Yes (Hospitalization, Other)
  Sender: FDA-Public Use
  Company Number: JP-AMGEN-JPNNI2017073008

PATIENT
  Age: 69 Year
  Sex: Male

DRUGS (5)
  1. VICCLOX [Concomitant]
     Active Substance: ACYCLOVIR SODIUM
     Dosage: UNK
     Dates: start: 20161102
  2. REVLIMID [Suspect]
     Active Substance: LENALIDOMIDE
     Indication: PLASMA CELL MYELOMA
     Dosage: 20 MG, UNK
     Route: 048
     Dates: start: 20161101, end: 20161121
  3. KYPROLIS [Suspect]
     Active Substance: CARFILZOMIB
     Indication: PLASMA CELL MYELOMA
     Dosage: 20 MG/M2, UNK
     Route: 041
     Dates: start: 20161101, end: 20161102
  4. KYPROLIS [Suspect]
     Active Substance: CARFILZOMIB
     Dosage: 27 MG/M2, UNK
     Route: 041
     Dates: start: 20161108, end: 20161109
  5. DEXAMETHASONE. [Concomitant]
     Active Substance: DEXAMETHASONE
     Dosage: UNK UNK, QWK
     Dates: start: 20061101, end: 20161108

REACTIONS (1)
  - Colitis ischaemic [Recovered/Resolved]

NARRATIVE: CASE EVENT DATE: 20161114
